FAERS Safety Report 10479936 (Version 1)
Quarter: 2014Q3

REPORT INFORMATION
  Report Type: Spontaneous
  Country: FR (occurrence: FR)
  Receive Date: 20140929
  Receipt Date: 20140929
  Transmission Date: 20150326
  Serious: Yes (Hospitalization)
  Sender: FDA-Public Use
  Company Number: FR-ACCORD-026108

PATIENT
  Age: 63 Year
  Sex: Male

DRUGS (4)
  1. APREPITANT [Concomitant]
     Active Substance: APREPITANT
     Dosage: 125 MG DAILY THEN 80 MG DAILY
     Route: 048
     Dates: start: 20140804
  2. ACCORD FLUOROURACIL [Suspect]
     Active Substance: FLUOROURACIL
     Indication: OROPHARYNGEAL CANCER
     Dosage: FIRST COURSE
     Route: 042
     Dates: start: 20140804
  3. DOMPERIDONE ARROW [Concomitant]
     Active Substance: DOMPERIDONE
     Route: 048
     Dates: start: 20140804
  4. CISPLATINE MYLAN [Suspect]
     Active Substance: CISPLATIN
     Indication: OROPHARYNGEAL CANCER
     Route: 042
     Dates: start: 20140804

REACTIONS (1)
  - Hepatitis acute [Recovering/Resolving]

NARRATIVE: CASE EVENT DATE: 20140825
